FAERS Safety Report 13351310 (Version 2)
Quarter: 2017Q4

REPORT INFORMATION
  Report Type: Spontaneous
  Country: US (occurrence: US)
  Receive Date: 20170320
  Receipt Date: 20171027
  Transmission Date: 20180320
  Serious: No
  Sender: FDA-Public Use
  Company Number: US-BAYER-2017-052372

PATIENT
  Age: 82 Year
  Sex: Female
  Weight: 82 kg

DRUGS (9)
  1. MIRALAX [Suspect]
     Active Substance: POLYETHYLENE GLYCOL 3350
     Indication: GASTROINTESTINAL DISORDER
     Dosage: 1 DF, OM (1 PACKET ONCE A DAY IN THE MORNING)
     Route: 048
     Dates: end: 20170316
  2. METOPROLOL TARTRATE. [Concomitant]
     Active Substance: METOPROLOL TARTRATE
  3. NITROGLYCERIN. [Concomitant]
     Active Substance: NITROGLYCERIN
  4. MIRALAX [Suspect]
     Active Substance: POLYETHYLENE GLYCOL 3350
     Indication: GASTROINTESTINAL DISORDER
     Dosage: 1 DF, OM (1 PACKET ONCE A DAY IN THE MORNING)
     Route: 048
     Dates: end: 20170316
  5. BAYER LOW DOSE [Suspect]
     Active Substance: ASPIRIN
     Indication: ISCHAEMIC HEART DISEASE PROPHYLAXIS
     Route: 048
  6. METAMUCIL [Concomitant]
     Active Substance: PLANTAGO SEED
  7. METOPROLOL. [Concomitant]
     Active Substance: METOPROLOL
     Dosage: 50 MG, UNK
  8. PHILLIPS^ COLON HEALTH [Concomitant]
     Active Substance: PROBIOTICS NOS
  9. LISINOPRIL. [Concomitant]
     Active Substance: LISINOPRIL
     Dosage: 20 MG, UNK

REACTIONS (2)
  - Drug ineffective [Unknown]
  - Alopecia [Recovering/Resolving]
